FAERS Safety Report 4307810-X (Version None)
Quarter: 2004Q1

REPORT INFORMATION
  Report Type: 
  Country: None (occurrence: None)
  Receive Date: 20040226
  Receipt Date: 20030415
  Transmission Date: 20041129
  Serious: Yes (Life-Threatening, Hospitalization, Other)
  Sender: FDA-Public Use
  Company Number: 2003141186US

PATIENT
  Age: 88 Year
  Sex: Female
  Weight: 64.4 kg

DRUGS (5)
  1. CELEBREX [Suspect]
     Indication: RADICULOPATHY
     Dosage: 200 MG, QD, ORAL
     Route: 048
     Dates: start: 20021226
  2. PROVENTIL SOLUTION (SALBUTAMOL SULFATE) [Concomitant]
  3. ATROVENT [Concomitant]
  4. SYNTRHOID (LEVOTHYROXINE SODIUM) [Concomitant]
  5. FOSAMAX [Concomitant]

REACTIONS (4)
  - MYOCARDIAL INFARCTION [None]
  - RASH ERYTHEMATOUS [None]
  - RASH MACULO-PAPULAR [None]
  - URTICARIA [None]
